FAERS Safety Report 25241539 (Version 1)
Quarter: 2025Q2

REPORT INFORMATION
  Report Type: Report from Study
  Country: US (occurrence: US)
  Receive Date: 20250426
  Receipt Date: 20250426
  Transmission Date: 20250717
  Serious: Yes (Hospitalization)
  Sender: ABBVIE
  Company Number: US-ABBVIE-6209341

PATIENT
  Age: 66 Year
  Sex: Male
  Weight: 87.089 kg

DRUGS (1)
  1. HUMIRA [Suspect]
     Active Substance: ADALIMUMAB
     Indication: Crohn^s disease
     Dosage: CITRATE FREE
     Route: 058
     Dates: end: 202502

REACTIONS (6)
  - Blood magnesium abnormal [Recovered/Resolved]
  - Dehydration [Recovered/Resolved]
  - Frequent bowel movements [Not Recovered/Not Resolved]
  - Blood potassium abnormal [Recovered/Resolved]
  - Blood chloride abnormal [Recovered/Resolved]
  - Crohn^s disease [Unknown]

NARRATIVE: CASE EVENT DATE: 20250101
